FAERS Safety Report 5207305-5 (Version None)
Quarter: 2007Q1

REPORT INFORMATION
  Report Type: 
  Country: None (occurrence: None)
  Receive Date: 20070112
  Receipt Date: 20070104
  Transmission Date: 20070707
  Serious: Yes (Hospitalization, Other)
  Sender: FDA-Public Use
  Company Number: US-BRISTOL-MYERS SQUIBB COMPANY-13579321

PATIENT
  Age: 54 Year
  Sex: Male

DRUGS (2)
  1. DASATINIB [Suspect]
     Indication: CHRONIC MYELOID LEUKAEMIA
     Route: 048
     Dates: start: 20060731, end: 20061114
  2. LASIX [Concomitant]
     Dates: start: 20060701

REACTIONS (3)
  - PYREXIA [None]
  - SEPTIC SHOCK [None]
  - VENTRICULAR DYSFUNCTION [None]
